FAERS Safety Report 10467812 (Version 1)
Quarter: 2014Q3

REPORT INFORMATION
  Report Type: Spontaneous
  Country: US (occurrence: US)
  Receive Date: 20140922
  Receipt Date: 20140922
  Transmission Date: 20150326
  Serious: Yes (Other)
  Sender: FDA-Public Use
  Company Number: US-BAYER-2014-138945

PATIENT
  Age: 70 Year
  Sex: Female

DRUGS (1)
  1. CLIMARA PRO [Suspect]
     Active Substance: ESTRADIOL\LEVONORGESTREL
     Indication: INADEQUATE LUBRICATION
     Dosage: UNK
     Route: 062

REACTIONS (4)
  - Alopecia [None]
  - Cholelithiasis [None]
  - Application site irritation [None]
  - Off label use [None]
